FAERS Safety Report 5497635-4 (Version None)
Quarter: 2007Q4

REPORT INFORMATION
  Report Type: 
  Country: None (occurrence: None)
  Receive Date: 20071025
  Receipt Date: 20061220
  Transmission Date: 20080405
  Serious: No
  Sender: FDA-Public Use
  Company Number: A0632322A

PATIENT
  Age: 75 Year
  Sex: Female

DRUGS (5)
  1. ADVAIR DISKUS 100/50 [Suspect]
     Indication: EMPHYSEMA
     Dosage: 1PUFF TWICE PER DAY
     Route: 055
     Dates: start: 20060101
  2. NORVASC [Concomitant]
  3. HYZAAR [Concomitant]
  4. METFORMIN [Concomitant]
  5. SPIRIVA [Concomitant]

REACTIONS (3)
  - CHAPPED LIPS [None]
  - COUGH [None]
  - PALPITATIONS [None]
